FAERS Safety Report 7893101-7 (Version None)
Quarter: 2011Q4

REPORT INFORMATION
  Report Type: 
  Country: None (occurrence: None)
  Receive Date: 20111104
  Receipt Date: 20111027
  Transmission Date: 20120403
  Serious: Yes (Other)
  Sender: FDA-Public Use
  Company Number: SE-NAPPMUNDI-GBR-2011-0008963

PATIENT
  Sex: Male
  Weight: 92 kg

DRUGS (8)
  1. BUPRENORPHINE [Suspect]
     Dosage: 15 MCG, Q1H
     Route: 062
     Dates: start: 20111018, end: 20111020
  2. NITROLINGUAL [Concomitant]
     Indication: ANGINA PECTORIS
     Dosage: 0.4 MG, DAILY
     Route: 055
     Dates: start: 20090101
  3. BUPRENORPHINE [Suspect]
     Indication: PRODUCT USED FOR UNKNOWN INDICATION
     Dosage: 5 MCG, Q1H
     Route: 062
     Dates: start: 20111004, end: 20111011
  4. METOPROLOL TARTRATE [Concomitant]
     Indication: HYPERTENSION
     Dosage: 50 MG, DAILY
     Route: 048
     Dates: start: 20090101
  5. IMDUR [Concomitant]
     Indication: ANGINA PECTORIS
     Dosage: 30 MG, DAILY
     Route: 048
     Dates: start: 20090101
  6. BUPRENORPHINE [Suspect]
     Dosage: 10 MCG, Q1H
     Route: 062
     Dates: start: 20111011, end: 20111018
  7. ASPIRIN [Concomitant]
     Indication: CARDIAC DISORDER
     Dosage: 75 MG, DAILY
     Route: 048
     Dates: start: 20090101
  8. LEVOTHYROXINE SODIUM [Concomitant]
     Indication: GOITRE
     Dosage: 0.05 MG, DAILY
     Route: 048
     Dates: start: 19520101

REACTIONS (4)
  - ASPARTATE AMINOTRANSFERASE INCREASED [None]
  - BLOOD ALKALINE PHOSPHATASE INCREASED [None]
  - ALANINE AMINOTRANSFERASE INCREASED [None]
  - GAMMA-GLUTAMYLTRANSFERASE INCREASED [None]
